FAERS Safety Report 13845004 (Version 1)
Quarter: 2017Q3

REPORT INFORMATION
  Report Type: Spontaneous
  Country: IN (occurrence: IN)
  Receive Date: 20170808
  Receipt Date: 20170808
  Transmission Date: 20171127
  Serious: Yes (Other)
  Sender: FDA-Public Use
  Company Number: IN-GLENMARK PHARMACEUTICALS-2017GMK028432

PATIENT
  Age: 41 Year
  Sex: Male

DRUGS (1)
  1. TRIAMCINOLONE ACETONIDE. [Suspect]
     Active Substance: TRIAMCINOLONE ACETONIDE
     Indication: PRODUCT USED FOR UNKNOWN INDICATION
     Dosage: TRIAMCINOLONE IN THE LEFT EYE 2 WEEKS EARLIER
     Route: 065

REACTIONS (4)
  - Lenticular opacities [Unknown]
  - Macular oedema [Unknown]
  - Accidental exposure to product [Unknown]
  - Retinal haemorrhage [Unknown]
